FAERS Safety Report 5201604-9 (Version None)
Quarter: 2007Q1

REPORT INFORMATION
  Report Type: 
  Country: None (occurrence: None)
  Receive Date: 20070104
  Receipt Date: 20061211
  Transmission Date: 20070707
  Serious: No
  Sender: FDA-Public Use
  Company Number: E3810-00507-SPO-IT

PATIENT
  Sex: Female

DRUGS (1)
  1. RABEPRAZOLE SODIUM [Suspect]
     Indication: GASTRIC ULCER
     Dosage: 20 MG, ORAL
     Route: 048

REACTIONS (1)
  - GASTRIC NEOPLASM [None]
